FAERS Safety Report 22620821 (Version 1)
Quarter: 2023Q2

REPORT INFORMATION
  Report Type: Spontaneous
  Country: US (occurrence: None)
  Receive Date: 20230620
  Receipt Date: 20230620
  Transmission Date: 20230722
  Serious: No
  Sender: FDA-Public Use
  Company Number: 2023A120182

PATIENT
  Age: 50 Year
  Sex: Female
  Weight: 90.3 kg

DRUGS (1)
  1. TEZSPIRE [Suspect]
     Active Substance: TEZEPELUMAB-EKKO
     Indication: Asthma
     Route: 058

REACTIONS (3)
  - Injection site erythema [Recovering/Resolving]
  - Injection site swelling [Recovering/Resolving]
  - Injection site warmth [Recovering/Resolving]

NARRATIVE: CASE EVENT DATE: 20230519
